FAERS Safety Report 7814130-5 (Version None)
Quarter: 2011Q4

REPORT INFORMATION
  Report Type: 
  Country: None (occurrence: None)
  Receive Date: 20111014
  Receipt Date: 20111007
  Transmission Date: 20120403
  Serious: Yes (Other)
  Sender: FDA-Public Use
  Company Number: GB-ASTELLAS-2011EU007033

PATIENT
  Sex: Female

DRUGS (2)
  1. PROTOPIC [Suspect]
     Indication: PYODERMA GANGRENOSUM
     Dosage: 0.1 %, PRN
     Route: 065
  2. WARFARIN SODIUM [Concomitant]
     Dosage: UNK
     Route: 065

REACTIONS (4)
  - INTERNATIONAL NORMALISED RATIO INCREASED [None]
  - HERPES ZOSTER [None]
  - OFF LABEL USE [None]
  - MEDICATION ERROR [None]
